FAERS Safety Report 7315625-3 (Version None)
Quarter: 2011Q1

REPORT INFORMATION
  Report Type: 
  Country: None (occurrence: None)
  Receive Date: 20110215
  Receipt Date: 20110207
  Transmission Date: 20110831
  Serious: Yes (Death)
  Sender: FDA-Public Use
  Company Number: MSTR-NO-1102S-0063

PATIENT
  Age: 81 Year
  Sex: Male

DRUGS (1)
  1. METASTRON [Suspect]
     Indication: METASTATIC PAIN
     Dosage: 126 MBQ, SINGLE DOSE, I.V.
     Route: 042
     Dates: start: 20101221, end: 20101221

REACTIONS (2)
  - DISSEMINATED INTRAVASCULAR COAGULATION [None]
  - BONE MARROW FAILURE [None]
